FAERS Safety Report 4514029-6 (Version None)
Quarter: 2004Q4

REPORT INFORMATION
  Report Type: 
  Country: None (occurrence: None)
  Receive Date: 20041130
  Receipt Date: 20040804
  Transmission Date: 20050328
  Serious: Yes (Death, Disabling, Other)
  Sender: FDA-Public Use
  Company Number: PHBS2004JP10358

PATIENT
  Age: 60 Year
  Sex: Female
  Weight: 57 kg

DRUGS (9)
  1. SIMULECT [Suspect]
     Indication: LIVER TRANSPLANT
     Dosage: 20 MG, ONCE/SINGLE
     Route: 042
     Dates: start: 20030523, end: 20030523
  2. SIMULECT [Suspect]
     Dosage: 20 MG, ONCE/SINGLE
     Route: 042
     Dates: start: 20030527, end: 20030527
  3. NEORAL [Suspect]
     Indication: LIVER TRANSPLANT
     Dosage: UNK, UNK
     Route: 048
     Dates: start: 20030211, end: 20030227
  4. TACROLIMUS [Suspect]
     Indication: LIVER TRANSPLANT
     Dosage: 1.2 - 2.5 MG/D
     Route: 042
     Dates: start: 20030115, end: 20030131
  5. TACROLIMUS [Suspect]
     Dosage: 0.5 - 2 MG/D
     Route: 048
     Dates: start: 20030201, end: 20030210
  6. TACROLIMUS [Suspect]
     Dosage: 0.7 - 3 MG/D
     Route: 048
     Dates: start: 20030301, end: 20030715
  7. STEROIDS NOS [Suspect]
     Indication: LIVER TRANSPLANT
     Dosage: UNK, UNK
     Route: 042
     Dates: start: 20030114
  8. STEROIDS NOS [Suspect]
     Dosage: 5 - 100 MG/D
     Route: 048
  9. CELLCEPT [Suspect]
     Indication: LIVER TRANSPLANT
     Dosage: 750 MG/D
     Route: 048
     Dates: start: 20030210, end: 20030510

REACTIONS (13)
  - BLOOD BILIRUBIN INCREASED [None]
  - BRONCHOPULMONARY ASPERGILLOSIS [None]
  - CARDIOMEGALY [None]
  - CHOLESTASIS [None]
  - HEPATIC FAILURE [None]
  - HEPATITIS C [None]
  - HEPATOCELLULAR DAMAGE [None]
  - HEPATOMEGALY [None]
  - HYPERPLASIA [None]
  - LIVER TRANSPLANT REJECTION [None]
  - MULTI-ORGAN FAILURE [None]
  - PULMONARY MYCOSIS [None]
  - RENAL FAILURE [None]
